FAERS Safety Report 8102393-0 (Version None)
Quarter: 2012Q1

REPORT INFORMATION
  Report Type: 
  Country: None (occurrence: None)
  Receive Date: 20120201
  Receipt Date: 20120125
  Transmission Date: 20120608
  Serious: No
  Sender: FDA-Public Use
  Company Number: US-PFIZER INC-2012021766

PATIENT
  Sex: Female

DRUGS (4)
  1. LISINOPRIL [Concomitant]
     Dosage: 10 MG, UNK
     Route: 048
  2. LEVOTHYROXINE [Concomitant]
     Dosage: 112 UG, UNK
     Route: 048
  3. IMODIUM MULTI-SYMPTOM RELIEF [Concomitant]
     Dosage: UNK
     Route: 048
  4. SUTENT [Suspect]
     Dosage: 50 MG (1 CAPSULE), 1X/DAY, 3/2 SCHEDULE
     Route: 048
     Dates: start: 20111118

REACTIONS (1)
  - DRY SKIN [None]
